FAERS Safety Report 9934634 (Version 10)
Quarter: 2015Q3

REPORT INFORMATION
  Report Type: Report from Study
  Country: CN (occurrence: CN)
  Receive Date: 20140228
  Receipt Date: 20150729
  Transmission Date: 20151125
  Serious: Yes (Hospitalization)
  Sender: FDA-Public Use
  Company Number: CN-GLAXOSMITHKLINE-B0973068A

PATIENT
  Age: 20 Year
  Sex: Female
  Weight: 53.5 kg

DRUGS (8)
  1. PANANGIN [Concomitant]
     Active Substance: MAGNESIUM ASPARTATE\POTASSIUM ASPARTATE
     Indication: ELECTROLYTE SUBSTITUTION THERAPY
  2. CETYLPYRIDINIUM CHLORIDE. [Concomitant]
     Active Substance: CETYLPYRIDINIUM CHLORIDE
     Indication: MOUTH ULCERATION
     Dosage: UNK, TID
  3. CILOSTAZOL. [Suspect]
     Active Substance: CILOSTAZOL
     Indication: ANTIPLATELET THERAPY
     Dosage: UNK
     Dates: start: 20140211, end: 20140221
  4. HYDROXYCHLOROQUINE [Concomitant]
     Active Substance: HYDROXYCHLOROQUINE
     Indication: SYSTEMIC LUPUS ERYTHEMATOSUS
     Dosage: 0.2 MG, BID
     Route: 048
  5. BELIMUMAB [Suspect]
     Active Substance: BELIMUMAB
     Indication: SYSTEMIC LUPUS ERYTHEMATOSUS
     Route: 042
     Dates: start: 20131213, end: 20140207
  6. PANANGIN [Concomitant]
     Active Substance: MAGNESIUM ASPARTATE\POTASSIUM ASPARTATE
     Indication: PROPHYLAXIS
     Dosage: 20 MG, QD
     Route: 042
     Dates: start: 20140227, end: 20140303
  7. METOCLOPRAMIDE. [Concomitant]
     Active Substance: METOCLOPRAMIDE
     Indication: PAIN PROPHYLAXIS
     Dosage: 10 MG, QD
     Route: 030
     Dates: start: 20140224, end: 20140224
  8. DEXAMETHASONE + TOBRAMYCIN [Concomitant]
     Indication: INFECTION PROPHYLAXIS
     Dosage: 0.1 ML, TID
     Dates: start: 20140224, end: 20140226

REACTIONS (1)
  - Dermatitis allergic [Recovered/Resolved]

NARRATIVE: CASE EVENT DATE: 20140219
